FAERS Safety Report 9114279 (Version 1)
Quarter: 2013Q1

REPORT INFORMATION
  Report Type: Spontaneous
  Country: US (occurrence: None)
  Receive Date: 20130220
  Receipt Date: 20130220
  Transmission Date: 20140127
  Serious: Yes (Other)
  Sender: FDA-Public Use
  Company Number: None

PATIENT
  Age: 43 Year
  Sex: Female

DRUGS (6)
  1. PROMACTA [Suspect]
     Dosage: PROMACTA  50MGMWF, 25MGTUTHSASU   ORALLY?4/2011  -  1/2013
     Route: 048
     Dates: start: 201104, end: 201301
  2. PREDNISONE [Concomitant]
  3. TYLENOL #3 [Concomitant]
  4. XANAX [Concomitant]
  5. PRILOSEC [Concomitant]
  6. CLARITIN [Concomitant]

REACTIONS (2)
  - Platelet count increased [None]
  - Treatment noncompliance [None]
